FAERS Safety Report 7717095-X (Version None)
Quarter: 2011Q3

REPORT INFORMATION
  Report Type: 
  Country: None (occurrence: None)
  Receive Date: 20110830
  Receipt Date: 20110823
  Transmission Date: 20111222
  Serious: Yes (Hospitalization)
  Sender: FDA-Public Use
  Company Number: US-BIOGENIDEC-2011BI031962

PATIENT
  Age: 58 Year
  Sex: Male

DRUGS (2)
  1. AVONEX [Suspect]
     Indication: MULTIPLE SCLEROSIS
     Route: 030
     Dates: start: 19950119
  2. AVONEX [Suspect]
     Route: 030

REACTIONS (5)
  - PNEUMONIA [None]
  - CONVULSION [None]
  - CEREBROVASCULAR ACCIDENT [None]
  - DEMENTIA [None]
  - STAPHYLOCOCCAL INFECTION [None]
